FAERS Safety Report 19677708 (Version 2)
Quarter: 2021Q4

REPORT INFORMATION
  Report Type: Other
  Country: CN (occurrence: CN)
  Receive Date: 20210810
  Receipt Date: 20211130
  Transmission Date: 20220303
  Serious: Yes (Hospitalization)
  Sender: FDA-Public Use
  Company Number: CN-GE HEALTHCARE LIFE SCIENCES-2021CSU003872

PATIENT

DRUGS (5)
  1. VISIPAQUE [Suspect]
     Active Substance: IODIXANOL
     Indication: Diagnostic procedure
     Dosage: 58 ML, SINGLE
     Route: 013
     Dates: start: 20210525, end: 20210525
  2. VISIPAQUE [Suspect]
     Active Substance: IODIXANOL
     Indication: Angiocardiogram
  3. VISIPAQUE [Suspect]
     Active Substance: IODIXANOL
     Indication: Chest discomfort
  4. VISIPAQUE [Suspect]
     Active Substance: IODIXANOL
     Indication: Arteriosclerosis
  5. VISIPAQUE [Suspect]
     Active Substance: IODIXANOL
     Indication: Stenosis

REACTIONS (2)
  - Chest discomfort [Recovering/Resolving]
  - Rash [Recovering/Resolving]

NARRATIVE: CASE EVENT DATE: 20210525
